FAERS Safety Report 21141755 (Version 1)
Quarter: 2022Q3

REPORT INFORMATION
  Report Type: Spontaneous
  Country: US (occurrence: US)
  Receive Date: 20220728
  Receipt Date: 20220728
  Transmission Date: 20221027
  Serious: Yes (Hospitalization, Other)
  Sender: FDA-Public Use
  Company Number: US-FreseniusKabi-FK202210382

PATIENT
  Age: 70 Year
  Sex: Male

DRUGS (4)
  1. CLADRIBINE [Suspect]
     Active Substance: CLADRIBINE
     Indication: Acute erythroid leukaemia
  2. CYTARABINE [Suspect]
     Active Substance: CYTARABINE
     Indication: Acute erythroid leukaemia
  3. MITOXANTRONE [Suspect]
     Active Substance: MITOXANTRONE HYDROCHLORIDE
     Indication: Acute erythroid leukaemia
  4. FILGRASTIM [Suspect]
     Active Substance: FILGRASTIM
     Indication: Acute erythroid leukaemia

REACTIONS (5)
  - Endophthalmitis [Recovering/Resolving]
  - Febrile neutropenia [Recovered/Resolved]
  - Abdominal pain lower [Unknown]
  - Bacteraemia [Unknown]
  - Enterococcal infection [Unknown]
